FAERS Safety Report 6492446-5 (Version None)
Quarter: 2009Q4

REPORT INFORMATION
  Report Type: 
  Country: None (occurrence: None)
  Receive Date: 20091214
  Receipt Date: 20091202
  Transmission Date: 20100525
  Serious: Yes (Hospitalization)
  Sender: FDA-Public Use
  Company Number: AU-PFIZER INC-2007054419

PATIENT
  Age: 58 Year
  Sex: Male

DRUGS (10)
  1. MARAVIROC [Suspect]
     Indication: HIV TEST POSITIVE
     Dosage: 300 MG, 2X/DAY
     Route: 048
     Dates: start: 20060130
  2. COMBIVIR [Suspect]
     Indication: HIV TEST POSITIVE
     Dosage: 300/600 MILLIGRAM
     Route: 048
     Dates: start: 20050714
  3. TRAMAL [Concomitant]
     Route: 048
     Dates: start: 20060621
  4. GABAPENTIN [Concomitant]
     Route: 048
     Dates: start: 20070622
  5. GEMFIBROZIL [Concomitant]
     Indication: LIPIDS
     Dosage: 600 MG, 1X/DAY
  6. METFORMIN [Concomitant]
     Indication: TYPE 2 DIABETES MELLITUS
     Dosage: 1000 MG, 2X/DAY
  7. NORVASC [Concomitant]
     Indication: HYPERTENSION
     Dosage: 10 MG, 1X/DAY
  8. PRAZOSIN [Concomitant]
     Indication: HYPERTENSION
     Dosage: 5 MG, 2X/DAY
  9. ATACAND [Concomitant]
     Indication: HYPERTENSION
     Dosage: 32 MG, 1X/DAY
  10. KAPANOL [Concomitant]
     Indication: PAIN
     Dosage: 100 MG, 1X/DAY

REACTIONS (2)
  - MULTIPLE MYELOMA [None]
  - PNEUMONIA [None]
